FAERS Safety Report 23724745 (Version 2)
Quarter: 2024Q2

REPORT INFORMATION
  Report Type: Report from Study
  Country: CO (occurrence: CO)
  Receive Date: 20240409
  Receipt Date: 20240517
  Transmission Date: 20240715
  Serious: Yes (Other)
  Sender: FDA-Public Use
  Company Number: CO-ABBVIE-5711326

PATIENT
  Sex: Male
  Weight: 72 kg

DRUGS (6)
  1. SKYRIZI [Suspect]
     Active Substance: RISANKIZUMAB-RZAA
     Indication: Psoriasis
     Dosage: FORM STRENGTH: 150 MG
     Route: 058
     Dates: start: 20230628
  2. SKYRIZI [Suspect]
     Active Substance: RISANKIZUMAB-RZAA
     Dosage: FORM STRENGTH: 150 MG/DOSE REDUCED
     Route: 058
     Dates: start: 202402
  3. METOPROLOL [Concomitant]
     Active Substance: METOPROLOL
     Indication: Hypertension
     Dosage: START DATE TEXT: BEFORE SKYRIZI.
     Route: 048
     Dates: end: 202402
  4. ATORVASTATIN [Concomitant]
     Active Substance: ATORVASTATIN
     Indication: Hypertension
     Dosage: START DATE TEXT: BEFORE SKYRIZI.?FORM STRENGTH: 20 MG
     Route: 048
  5. CARVEDILOL [Concomitant]
     Active Substance: CARVEDILOL
     Indication: Hypertension
     Dosage: FORM STRENGTH: 6.25 MG
     Route: 048
     Dates: start: 202402
  6. LOSARTAN [Concomitant]
     Active Substance: LOSARTAN
     Indication: Hypertension
     Dosage: START DATE TEXT: BEFORE SKYRIZI.?FORM STRENGTH: 50MG
     Route: 048

REACTIONS (7)
  - Haematochezia [Recovered/Resolved]
  - Anaemia [Unknown]
  - Weight decreased [Unknown]
  - Colon cancer [Unknown]
  - Sneezing [Not Recovered/Not Resolved]
  - Influenza [Not Recovered/Not Resolved]
  - Immunodeficiency [Not Recovered/Not Resolved]

NARRATIVE: CASE EVENT DATE: 20230101
